FAERS Safety Report 9144054 (Version 4)
Quarter: 2020Q3

REPORT INFORMATION
  Report Type: Other
  Country: JP (occurrence: JP)
  Receive Date: 20130306
  Receipt Date: 20200817
  Transmission Date: 20201103
  Serious: Yes (Other)
  Sender: FDA-Public Use
  Company Number: JP-ROCHE-1195234

PATIENT

DRUGS (3)
  1. OXALIPLATIN. [Suspect]
     Active Substance: OXALIPLATIN
     Indication: RECTAL CANCER
     Dosage: ON DAY 1 EVERY 3 WEEKS
     Route: 065
  2. CAPECITABINE. [Suspect]
     Active Substance: CAPECITABINE
     Indication: RECTAL CANCER
     Dosage: ON DAYS 1?15
     Route: 065
  3. BEVACIZUMAB. [Suspect]
     Active Substance: BEVACIZUMAB
     Indication: RECTAL CANCER
     Dosage: ON DAY 1 EVERY 3 WEEKS
     Route: 065

REACTIONS (14)
  - Rectal obstruction [Unknown]
  - Anaemia [Unknown]
  - Hypertension [Unknown]
  - Asthenia [Unknown]
  - Decreased appetite [Unknown]
  - Intestinal obstruction [Unknown]
  - Neutropenia [Unknown]
  - Embolism [Unknown]
  - Haemorrhage [Unknown]
  - Nausea [Unknown]
  - Blood creatine phosphokinase increased [Unknown]
  - Vomiting [Unknown]
  - Pelvic infection [Unknown]
  - Thrombocytopenia [Unknown]
